FAERS Safety Report 7012802-6 (Version None)
Quarter: 2010Q3

REPORT INFORMATION
  Report Type: 
  Country: None (occurrence: None)
  Receive Date: 20100924
  Receipt Date: 20100917
  Transmission Date: 20110219
  Serious: Yes (Death, Hospitalization)
  Sender: FDA-Public Use
  Company Number: B0656255A

PATIENT
  Sex: Male

DRUGS (10)
  1. MARAVIROC [Suspect]
     Dosage: 300MG TWICE PER DAY
     Route: 048
     Dates: start: 20060130
  2. COMBIVIR [Suspect]
     Route: 048
     Dates: start: 20050714
  3. TRAMADOL HCL [Concomitant]
     Route: 048
     Dates: start: 20060621
  4. GABAPENTIN [Concomitant]
     Route: 048
     Dates: start: 20070622
  5. GEMFIBROZIL [Concomitant]
     Indication: LIPIDS
     Dosage: 600MG PER DAY
  6. METFORMIN [Concomitant]
     Dosage: 1000MG TWICE PER DAY
  7. NORVASC [Concomitant]
     Indication: HYPERTENSION
     Dosage: 10MG PER DAY
  8. PRAZOSIN HCL [Concomitant]
     Indication: HYPERTENSION
     Dosage: 5MG TWICE PER DAY
  9. ATACAND [Concomitant]
     Indication: HYPERTENSION
     Dosage: 32MG PER DAY
  10. KAPANOL [Concomitant]
     Indication: PAIN
     Dosage: 100MG PER DAY

REACTIONS (2)
  - MULTIPLE MYELOMA [None]
  - PNEUMONIA [None]
